FAERS Safety Report 11648202 (Version 1)
Quarter: 2015Q4

REPORT INFORMATION
  Report Type: Spontaneous
  Country: US (occurrence: US)
  Receive Date: 20151021
  Receipt Date: 20151021
  Transmission Date: 20160304
  Serious: No
  Sender: FDA-Public Use
  Company Number: US-DRREDDYS-USA/USA/15/0049571

PATIENT
  Age: 69 Year
  Sex: Female
  Weight: 69.39 kg

DRUGS (1)
  1. ZOLEDRONIC ACID INJECTION, 5 MG (BASE)/100 ML [Suspect]
     Active Substance: ZOLEDRONIC ACID
     Indication: OSTEOPOROSIS
     Route: 042
     Dates: start: 20150721

REACTIONS (6)
  - Feeling abnormal [Unknown]
  - Pyrexia [Recovered/Resolved]
  - Headache [Unknown]
  - Bone pain [Recovered/Resolved]
  - Myalgia [Recovered/Resolved]
  - Dizziness [Unknown]

NARRATIVE: CASE EVENT DATE: 20150721
